FAERS Safety Report 8789142 (Version 1)
Quarter: 2012Q4

REPORT INFORMATION
  Report Type: Spontaneous
  Country: US (occurrence: None)
  Receive Date: 20120910
  Receipt Date: 20120910
  Transmission Date: 20130627
  Serious: Yes (Other)
  Sender: FDA-Public Use
  Company Number: None

PATIENT
  Age: 76 Year
  Sex: Female
  Weight: 90.72 kg

DRUGS (1)
  1. DOXYCYCLINE [Suspect]
     Dosage: 1.50 2 bedtime oral
end of Apr + early May
     Route: 048

REACTIONS (5)
  - Abdominal pain upper [None]
  - Dizziness [None]
  - Vomiting [None]
  - Activities of daily living impaired [None]
  - Somnolence [None]
